FAERS Safety Report 7578392-4 (Version None)
Quarter: 2011Q2

REPORT INFORMATION
  Report Type: 
  Country: None (occurrence: None)
  Receive Date: 20110628
  Receipt Date: 20110623
  Transmission Date: 20111010
  Serious: Yes (Hospitalization, Other)
  Sender: FDA-Public Use
  Company Number: US-SANOFI-AVENTIS-2011SA040115

PATIENT
  Sex: Female

DRUGS (3)
  1. ASPIRIN [Suspect]
  2. ASPIRIN [Suspect]
  3. PLAVIX [Suspect]
     Route: 065

REACTIONS (4)
  - MEMORY IMPAIRMENT [None]
  - ABSCESS DRAINAGE [None]
  - INTRACRANIAL ANEURYSM [None]
  - POST PROCEDURAL HAEMORRHAGE [None]
